FAERS Safety Report 11452334 (Version 1)
Quarter: 2015Q3

REPORT INFORMATION
  Report Type: Spontaneous
  Country: US (occurrence: US)
  Receive Date: 20150831
  Receipt Date: 20150831
  Transmission Date: 20151125
  Serious: No
  Sender: FDA-Public Use
  Company Number: US-ELI_LILLY_AND_COMPANY-US200907005140

PATIENT
  Age: 45 Year
  Sex: Female

DRUGS (3)
  1. CYMBALTA [Suspect]
     Active Substance: DULOXETINE HYDROCHLORIDE
     Dosage: 90 MG, UNK
  2. CYMBALTA [Suspect]
     Active Substance: DULOXETINE HYDROCHLORIDE
     Indication: DIABETIC NEUROPATHY
     Dosage: 60 MG, UNK
     Dates: start: 2008
  3. DURAGESIC [Concomitant]
     Active Substance: FENTANYL

REACTIONS (4)
  - Feeling abnormal [Recovered/Resolved]
  - Crying [Not Recovered/Not Resolved]
  - Anxiety [Unknown]
  - Intentional product misuse [Unknown]
